FAERS Safety Report 8850100 (Version 1)
Quarter: 2012Q4

REPORT INFORMATION
  Report Type: 
  Country: FR (occurrence: FR)
  Receive Date: 20121019
  Receipt Date: 20121019
  Transmission Date: 20130627
  Serious: Yes (Hospitalization)
  Sender: FDA-Public Use
  Company Number: FR-MERCK-1210FRA008797

PATIENT
  Sex: Female

DRUGS (8)
  1. XELEVIA [Suspect]
     Indication: PRODUCT USED FOR UNKNOWN INDICATION
     Dosage: UNK
     Route: 048
     Dates: end: 201208
  2. BYETTA [Suspect]
     Indication: PRODUCT USED FOR UNKNOWN INDICATION
     Dosage: 5 Microgram, BID
     Route: 058
     Dates: end: 201208
  3. KEPPRA [Concomitant]
     Dosage: 500 mg, BID
     Dates: start: 20120909
  4. METFORMIN [Concomitant]
     Dosage: 850 mg, TID
     Dates: end: 201208
  5. HEMI-DAONIL [Concomitant]
     Dosage: UNK, tid
  6. AMLOR [Concomitant]
     Dosage: UNK
  7. EXELON (RIVASTIGMINE TARTRATE) [Concomitant]
     Dosage: UNK
  8. TAHOR [Concomitant]
     Dosage: UNK

REACTIONS (2)
  - Abnormal behaviour [Recovered/Resolved]
  - Hypoglycaemia [Recovered/Resolved]
